FAERS Safety Report 7690484-8 (Version None)
Quarter: 2011Q3

REPORT INFORMATION
  Report Type: 
  Country: None (occurrence: None)
  Receive Date: 20110818
  Receipt Date: 20110815
  Transmission Date: 20111222
  Serious: Yes (Other)
  Sender: FDA-Public Use
  Company Number: GB-PFIZER INC-2011187832

PATIENT
  Age: 34 Year
  Sex: Male

DRUGS (3)
  1. GABAPENTIN [Suspect]
     Dosage: UNK
  2. CLONAZEPAM [Suspect]
     Dosage: UNK
  3. SUBUTEX [Suspect]
     Dosage: UNK

REACTIONS (1)
  - HOMICIDE [None]
